FAERS Safety Report 4319970-5 (Version None)
Quarter: 2004Q1

REPORT INFORMATION
  Report Type: 
  Country: None (occurrence: None)
  Receive Date: 20040316
  Receipt Date: 20040301
  Transmission Date: 20041129
  Serious: Yes (Other)
  Sender: FDA-Public Use
  Company Number: USA031152007

PATIENT
  Age: 69 Year
  Sex: Female

DRUGS (5)
  1. EVISTA [Suspect]
     Indication: BONE DISORDER
     Dosage: 60 MG/DAY
     Dates: start: 19980101, end: 20030101
  2. EVISTA [Suspect]
     Indication: METRORRHAGIA
     Dosage: 60 MG/DAY
     Dates: start: 19980101, end: 20030101
  3. PREMARIN [Concomitant]
  4. PROVERA [Concomitant]
  5. ACTONEL [Concomitant]

REACTIONS (4)
  - ENDOMETRIAL CANCER [None]
  - FEELING ABNORMAL [None]
  - FRACTURED SACRUM [None]
  - OSTEOPENIA [None]
